FAERS Safety Report 10009068 (Version 1)
Quarter: 2014Q1

REPORT INFORMATION
  Report Type: Spontaneous
  Country: US (occurrence: US)
  Receive Date: 20140313
  Receipt Date: 20140313
  Transmission Date: 20141002
  Serious: No
  Sender: FDA-Public Use
  Company Number: US-INCYTE CORPORATION-2012IN001395

PATIENT
  Age: 69 Year
  Sex: Male

DRUGS (8)
  1. JAKAFI [Suspect]
     Indication: MYELOFIBROSIS
     Dosage: 10 MG, QD
     Route: 048
     Dates: start: 201203
  2. JAKAFI [Suspect]
     Dosage: UNK (DOSE DECREASED)
  3. WARFARIN [Concomitant]
  4. BENAZEPRIL [Concomitant]
  5. TAMSULOSIN [Concomitant]
  6. AMBIEN [Concomitant]
     Dosage: UNK, PRN
  7. PERCOCET [Concomitant]
     Dosage: UNK, PRN
  8. ADVAIR [Concomitant]

REACTIONS (2)
  - Bone pain [Unknown]
  - Arthralgia [Unknown]
